FAERS Safety Report 8448910-2 (Version None)
Quarter: 2012Q2

REPORT INFORMATION
  Report Type: 
  Country: None (occurrence: None)
  Receive Date: 20120619
  Receipt Date: 20120611
  Transmission Date: 20120825
  Serious: Yes (Death)
  Sender: FDA-Public Use
  Company Number: US-GLAXOSMITHKLINE-A0981593A

PATIENT
  Sex: Female

DRUGS (1)
  1. ARIXTRA [Suspect]
     Indication: PRODUCT USED FOR UNKNOWN INDICATION
     Dates: start: 20120510, end: 20120524

REACTIONS (2)
  - LARYNGEAL CANCER [None]
  - LUNG NEOPLASM MALIGNANT [None]
